FAERS Safety Report 7324734-4 (Version None)
Quarter: 2011Q1

REPORT INFORMATION
  Report Type: 
  Country: None (occurrence: None)
  Receive Date: 20110301
  Receipt Date: 20110217
  Transmission Date: 20110831
  Serious: Yes (Other)
  Sender: FDA-Public Use
  Company Number: US-SOLVAY-00211001299

PATIENT
  Age: 63 Year
  Sex: Male
  Weight: 100 kg

DRUGS (4)
  1. ANDROGEL [Suspect]
     Dosage: DAILY DOSE: 10 GRAM(S)
     Route: 062
  2. OXYCONTIN [Concomitant]
     Indication: INTERVERTEBRAL DISC DEGENERATION
     Dosage: DAILY DOSE:  UNKNOWN
     Route: 065
  3. ANDROGEL [Suspect]
     Indication: PRODUCT USED FOR UNKNOWN INDICATION
     Dosage: DAILY DOSE: 5 GRAM(S)
     Route: 062
     Dates: start: 20040101
  4. NEURONTIN [Concomitant]
     Indication: INTERVERTEBRAL DISC DEGENERATION
     Dosage: DAILY DOSE:  UNKNOWN
     Route: 065

REACTIONS (2)
  - INTERVERTEBRAL DISC DEGENERATION [None]
  - RED BLOOD CELL COUNT INCREASED [None]
